FAERS Safety Report 9536290 (Version 1)
Quarter: 2013Q2

REPORT INFORMATION
  Report Type: Spontaneous
  Country: US (occurrence: None)
  Receive Date: 20130507
  Receipt Date: 20130507
  Transmission Date: 20140414
  Serious: Yes (Other)
  Sender: FDA-Public Use
  Company Number: PHEH2013US000888

PATIENT
  Age: 67 Year
  Sex: Female

DRUGS (6)
  1. AFINITOR (RAD) UNKNOWN [Suspect]
     Indication: BREAST CANCER
     Route: 048
     Dates: start: 20120801, end: 20121215
  2. AROMASIN (EXEMESTANE) [Concomitant]
  3. NEURONTIN (GABAPENTIN) [Concomitant]
  4. ALLERGEN (CHLORPHENAMINE MALEATE) [Concomitant]
  5. NEXIUM (AMOXICILLIN TRIHYDRATE, CLARITHROMYCIN, ESOMEPRAZOLE MAGNESIUM) [Concomitant]
  6. VITAMIN D (ERGOCALCIFEROL) [Concomitant]

REACTIONS (1)
  - Herpes zoster [None]
